FAERS Safety Report 17390131 (Version 1)
Quarter: 2020Q1

REPORT INFORMATION
  Report Type: Spontaneous
  Country: US (occurrence: US)
  Receive Date: 20200207
  Receipt Date: 20200207
  Transmission Date: 20200409
  Serious: Yes (Death, Life-Threatening, Hospitalization, Other)
  Sender: FDA-Public Use
  Company Number: US-HIKMA PHARMACEUTICALS USA INC.-US-H14001-20-50548

PATIENT
  Age: 67 Year
  Sex: Male

DRUGS (6)
  1. VANCOMYCIN [Suspect]
     Active Substance: VANCOMYCIN
     Indication: ACINETOBACTER BACTERAEMIA
     Route: 065
  2. DIPHENHYDRAMINE. [Concomitant]
     Active Substance: DIPHENHYDRAMINE
     Indication: CHILLS
     Route: 065
  3. TOBRAMYCIN. [Suspect]
     Active Substance: TOBRAMYCIN
     Indication: ACINETOBACTER BACTERAEMIA
     Route: 065
  4. PIPERACILLIN AND TAZOBACTAM [Suspect]
     Active Substance: PIPERACILLIN SODIUM\TAZOBACTAM SODIUM
     Indication: ACINETOBACTER BACTERAEMIA
     Route: 065
  5. PARACETAMOL [Concomitant]
     Active Substance: ACETAMINOPHEN
     Indication: CHILLS
     Dosage: ()
     Route: 065
  6. MEROPENEM. [Suspect]
     Active Substance: MEROPENEM
     Indication: ACINETOBACTER BACTERAEMIA
     Route: 065

REACTIONS (3)
  - Multiple organ dysfunction syndrome [Fatal]
  - Septic shock [Fatal]
  - Drug ineffective [Fatal]
